FAERS Safety Report 11584213 (Version 1)
Quarter: 2015Q4

REPORT INFORMATION
  Report Type: Spontaneous
  Country: US (occurrence: US)
  Receive Date: 20151001
  Receipt Date: 20151001
  Transmission Date: 20160304
  Serious: No
  Sender: FDA-Public Use
  Company Number: US-ROCHE-668192

PATIENT
  Age: 55 Year
  Sex: Male

DRUGS (2)
  1. PEGASYS [Suspect]
     Active Substance: PEGINTERFERON ALFA-2A
     Indication: HEPATITIS C
     Dosage: FORM: PFS
     Route: 065
  2. RIBAVIRIN. [Suspect]
     Active Substance: RIBAVIRIN
     Indication: HEPATITIS C
     Dosage: REQUENCY : DAILY
     Route: 065

REACTIONS (8)
  - Blood pressure increased [Unknown]
  - Eye injury [Unknown]
  - Asthenia [Recovering/Resolving]
  - Rash papular [Unknown]
  - Fatigue [Recovering/Resolving]
  - Mood altered [Recovering/Resolving]
  - Irritability [Unknown]
  - Rash pruritic [Unknown]

NARRATIVE: CASE EVENT DATE: 20091026
